FAERS Safety Report 22211960 (Version 1)
Quarter: 2023Q2

REPORT INFORMATION
  Report Type: Spontaneous
  Country: US (occurrence: US)
  Receive Date: 20230414
  Receipt Date: 20230414
  Transmission Date: 20230722
  Serious: Yes (Other)
  Sender: FDA-Public Use
  Company Number: US-APOTEX-2023AP007044

PATIENT

DRUGS (2)
  1. TEMOZOLOMIDE [Suspect]
     Active Substance: TEMOZOLOMIDE
     Indication: Glioblastoma
     Dosage: UNK
     Route: 065
  2. TEMOZOLOMIDE [Suspect]
     Active Substance: TEMOZOLOMIDE
     Dosage: UNK
     Route: 065

REACTIONS (14)
  - Deep vein thrombosis [Unknown]
  - Neuropathy peripheral [Unknown]
  - Haemorrhage intracranial [Unknown]
  - Hemiparesis [Unknown]
  - Pulmonary embolism [Unknown]
  - Seizure [Unknown]
  - Oedema peripheral [Unknown]
  - Language disorder [Unknown]
  - Speech disorder [Unknown]
  - Balance disorder [Unknown]
  - Weight decreased [Unknown]
  - Depression [Unknown]
  - Decreased appetite [Unknown]
  - Nausea [Unknown]
